FAERS Safety Report 8089690-2 (Version None)
Quarter: 2012Q1

REPORT INFORMATION
  Report Type: 
  Country: None (occurrence: None)
  Receive Date: 20120128
  Receipt Date: 20110629
  Transmission Date: 20120608
  Serious: No
  Sender: FDA-Public Use
  Company Number: US-ABBOTT-11P-163-0835852-00

PATIENT
  Sex: Female

DRUGS (15)
  1. LISINOPRIL [Concomitant]
     Indication: HYPERTENSION
     Route: 048
  2. GABAPENTIN [Concomitant]
     Indication: NEURALGIA
     Route: 048
  3. HYDROCHLOROTHIAZIDE [Concomitant]
     Indication: HYPERTENSION
     Route: 048
  4. HUMIRA [Suspect]
     Indication: PSORIATIC ARTHROPATHY
     Route: 058
     Dates: start: 20090101
  5. TRAZODONE HCL [Concomitant]
     Indication: ANXIETY
  6. VITAMIN D [Concomitant]
     Indication: SUPPLEMENTATION THERAPY
  7. LORTAB [Concomitant]
     Indication: ARTHRALGIA
     Dosage: TWICE DAILY AS NEEDED
     Route: 048
  8. RELAFEN [Concomitant]
     Indication: RHEUMATOID ARTHRITIS
     Route: 048
  9. SYNTHROID [Concomitant]
     Indication: HYPOTHYROIDISM
     Route: 048
  10. TRAZODONE HCL [Concomitant]
     Indication: DEPRESSION
     Route: 048
  11. VITAMIN D [Concomitant]
     Indication: RHEUMATOID ARTHRITIS
     Route: 048
  12. FLEXERIL [Concomitant]
     Indication: MUSCLE SPASMS
     Route: 048
  13. AMITRIPTYLINE HCL [Concomitant]
     Indication: DEPRESSION
     Route: 048
  14. KLONOPIN [Concomitant]
     Indication: ANXIETY
     Route: 048
  15. HUMIRA [Suspect]
     Indication: RHEUMATOID ARTHRITIS

REACTIONS (4)
  - MOUTH HAEMORRHAGE [None]
  - MUCOUS MEMBRANE DISORDER [None]
  - DRY MOUTH [None]
  - PAIN [None]
